FAERS Safety Report 15200151 (Version 15)
Quarter: 2019Q4

REPORT INFORMATION
  Report Type: Report from Study
  Country: None (occurrence: NL)
  Receive Date: 20180726
  Receipt Date: 20191118
  Transmission Date: 20200122
  Serious: Yes (Hospitalization)
  Sender: FDA-Public Use
  Company Number: NL-ABBVIE-18S-114-2426246-00

PATIENT
  Age: 76 Year
  Sex: Male

DRUGS (9)
  1. DUODOPA [Suspect]
     Active Substance: CARBIDOPA\LEVODOPA
     Indication: PARKINSON^S DISEASE
     Dosage: CD:4.1. ED: 2, MD:18
     Route: 050
     Dates: start: 20180702, end: 2018
  2. ENTACAPONE. [Concomitant]
     Active Substance: ENTACAPONE
     Indication: PRODUCT USED FOR UNKNOWN INDICATION
  3. DUODOPA [Suspect]
     Active Substance: CARBIDOPA\LEVODOPA
     Dosage: MD IS RAISED WITH 1 ML. CD WITH 0.3 ML AN HOUR; MD 13.0 ML; CD 3.1 ML/UUR; ED 2.0 ML
     Route: 050
     Dates: start: 2018
  4. DUODOPA [Suspect]
     Active Substance: CARBIDOPA\LEVODOPA
     Dosage: CD INCREASED WITH 0.3 ML TO 2.9 ML
     Route: 050
  5. DUODOPA [Suspect]
     Active Substance: CARBIDOPA\LEVODOPA
     Dosage: CD 3.4, ED 2.0
     Route: 050
  6. LEVODOPA/CARBIDOPA RET [Concomitant]
     Indication: PARKINSON^S DISEASE
     Dosage: 100/25MG ONCE A DAY 3 TABLETS
  7. DUODOPA [Suspect]
     Active Substance: CARBIDOPA\LEVODOPA
     Dosage: CD: 3.8 ML
     Route: 050
     Dates: start: 2018, end: 2018
  8. DUODOPA [Suspect]
     Active Substance: CARBIDOPA\LEVODOPA
     Dosage: MD 13, CD 2.6, ED 2
     Route: 050
  9. PRAMIPEXOL [Concomitant]
     Active Substance: PRAMIPEXOLE
     Indication: PARKINSON^S DISEASE

REACTIONS (31)
  - Fall [Recovered/Resolved]
  - Fine motor skill dysfunction [Not Recovered/Not Resolved]
  - Product dose omission [Recovered/Resolved]
  - Contusion [Not Recovered/Not Resolved]
  - Salivary hypersecretion [Not Recovered/Not Resolved]
  - Paraesthesia [Not Recovered/Not Resolved]
  - Fall [Recovered/Resolved]
  - Therapeutic product effect incomplete [Not Recovered/Not Resolved]
  - Polyneuropathy [Not Recovered/Not Resolved]
  - Wound [Not Recovered/Not Resolved]
  - Fibroma [Recovered/Resolved]
  - Cervical vertebral fracture [Recovering/Resolving]
  - Upper limb fracture [Not Recovered/Not Resolved]
  - Faeces hard [Not Recovered/Not Resolved]
  - Hypoaesthesia [Not Recovered/Not Resolved]
  - Mobility decreased [Recovered/Resolved]
  - Tension [Not Recovered/Not Resolved]
  - Device issue [Unknown]
  - Fall [Not Recovered/Not Resolved]
  - Speech disorder [Not Recovered/Not Resolved]
  - Stress [Not Recovered/Not Resolved]
  - Muscle rigidity [Not Recovered/Not Resolved]
  - Hip fracture [Recovering/Resolving]
  - Muscular weakness [Not Recovered/Not Resolved]
  - Upper limb fracture [Recovered/Resolved]
  - Pain in extremity [Recovering/Resolving]
  - Stoma site erythema [Recovered/Resolved]
  - Balance disorder [Not Recovered/Not Resolved]
  - On and off phenomenon [Not Recovered/Not Resolved]
  - Freezing phenomenon [Recovering/Resolving]
  - Weight decreased [Not Recovered/Not Resolved]

NARRATIVE: CASE EVENT DATE: 2018
